FAERS Safety Report 25257202 (Version 1)
Quarter: 2025Q2

REPORT INFORMATION
  Report Type: Spontaneous
  Country: MX (occurrence: MX)
  Receive Date: 20250430
  Receipt Date: 20250430
  Transmission Date: 20250716
  Serious: Yes (Other)
  Sender: MERCK SHARP & DOHME LLC
  Company Number: MX-009507513-2280138

PATIENT
  Age: 68 Year
  Sex: Male

DRUGS (4)
  1. CASPOFUNGIN [Suspect]
     Active Substance: CASPOFUNGIN
     Indication: Bronchopulmonary aspergillosis
     Route: 042
  2. POSACONAZOLE [Suspect]
     Active Substance: POSACONAZOLE
     Indication: Bronchopulmonary aspergillosis
     Route: 048
  3. CEFEPIME [Concomitant]
     Active Substance: CEFEPIME HYDROCHLORIDE
  4. AMBISOME [Concomitant]
     Active Substance: AMPHOTERICIN B
     Route: 042

REACTIONS (2)
  - Bronchopulmonary aspergillosis [Recovered/Resolved]
  - Drug ineffective [Unknown]
